FAERS Safety Report 9376068 (Version 1)
Quarter: 2013Q2

REPORT INFORMATION
  Report Type: Spontaneous
  Country: ZA (occurrence: ZA)
  Receive Date: 20130630
  Receipt Date: 20130630
  Transmission Date: 20140414
  Serious: Yes (Death, Other)
  Sender: FDA-Public Use
  Company Number: ZA-009507513-1306ZAF011461

PATIENT
  Age: 76 Year
  Sex: Male

DRUGS (1)
  1. CANCIDAS 50MG [Suspect]

REACTIONS (3)
  - Death [Fatal]
  - Surgery [Unknown]
  - Mechanical ventilation [Unknown]
